FAERS Safety Report 4786674-4 (Version None)
Quarter: 2005Q4

REPORT INFORMATION
  Report Type: 
  Country: None (occurrence: None)
  Receive Date: 20051003
  Receipt Date: 20051003
  Transmission Date: 20060501
  Serious: Yes (Other)
  Sender: FDA-Public Use
  Company Number: None

PATIENT
  Age: 58 Year
  Sex: Female
  Weight: 62.5964 kg

DRUGS (2)
  1. PROZAC [Suspect]
     Indication: DEPRESSION
     Dosage: 20 MG. ONCE PER DAY PO
     Route: 048
     Dates: start: 19920501, end: 20051001
  2. PROZAC [Suspect]
     Indication: PANIC DISORDER
     Dosage: 20 MG. ONCE PER DAY PO
     Route: 048
     Dates: start: 19920501, end: 20051001

REACTIONS (17)
  - ABNORMAL BEHAVIOUR [None]
  - AGGRESSION [None]
  - ANGER [None]
  - ANXIETY [None]
  - CARDIAC DISORDER [None]
  - CHEST PAIN [None]
  - DRUG DEPENDENCE [None]
  - DRUG WITHDRAWAL SYNDROME [None]
  - EXTRASYSTOLES [None]
  - FEAR [None]
  - FEELING ABNORMAL [None]
  - NERVOUS SYSTEM DISORDER [None]
  - NONSPECIFIC REACTION [None]
  - PALPITATIONS [None]
  - PHYSICAL ASSAULT [None]
  - PSYCHOSOMATIC DISEASE [None]
  - SUICIDAL IDEATION [None]
